FAERS Safety Report 9010042 (Version 5)
Quarter: 2021Q1

REPORT INFORMATION
  Report Type: Spontaneous
  Country: US (occurrence: US)
  Receive Date: 20130110
  Receipt Date: 20210216
  Transmission Date: 20210420
  Serious: Yes (Hospitalization, Other)
  Sender: FDA-Public Use
  Company Number: US-009507513-1301USA002296

PATIENT
  Sex: Female
  Weight: 79.14 kg

DRUGS (18)
  1. ALENDRONATE SODIUM. [Suspect]
     Active Substance: ALENDRONATE SODIUM
     Dosage: 70 MG, UNK
     Dates: start: 20080628, end: 20110411
  2. OMEGA?3 MARINE TRIGLYCERIDES [Concomitant]
     Active Substance: OMEGA-3-ACID ETHYL ESTERS
     Dosage: 2000?3000 MG QD
     Dates: start: 2000
  3. COLACE [Concomitant]
     Active Substance: DOCUSATE SODIUM
     Dosage: 1000 MG BID
     Dates: start: 2000
  4. THIAMINE. [Concomitant]
     Active Substance: THIAMINE
     Dosage: 100 MILLIGRAM, QD
     Dates: start: 2000
  5. ZESTRIL [Concomitant]
     Active Substance: LISINOPRIL
     Dosage: 5 MG, QD
     Dates: start: 20011010
  6. NEXIUM [Concomitant]
     Active Substance: ESOMEPRAZOLE MAGNESIUM
     Indication: GASTROOESOPHAGEAL REFLUX DISEASE
     Dosage: 40 MG,DAILY
     Route: 048
     Dates: start: 20030410
  7. FOLIC ACID. [Concomitant]
     Active Substance: FOLIC ACID
     Dosage: 1 MG, 4 TABS DAILY
     Dates: start: 2000
  8. NIASPAN [Concomitant]
     Active Substance: NIACIN
     Dosage: 500?2000MG, DAILY
     Dates: start: 2000
  9. FOSAMAX [Suspect]
     Active Substance: ALENDRONATE SODIUM
     Indication: OSTEOPOROSIS
     Dosage: 70 MG, UNK
     Route: 048
     Dates: start: 20031001, end: 201107
  10. CITRACAL + D [Concomitant]
     Active Substance: CALCIUM CITRATE\VITAMIN D
     Dosage: 500 MG/2000 IU BID
     Dates: start: 2000
  11. CHOLECALCIFEROL [Concomitant]
     Active Substance: CHOLECALCIFEROL
     Dosage: 2000 IU, DAILY
     Dates: start: 2000
  12. MELATONIN [Concomitant]
     Active Substance: MELATONIN
     Dosage: 2?3 MG, 1 HOUR BEFORE HS
     Dates: start: 2000
  13. SYNTHROID [Concomitant]
     Active Substance: LEVOTHYROXINE SODIUM
     Indication: HYPOTHYROIDISM
     Dosage: 137?150 MCGS QD
     Dates: start: 1997
  14. FOSAMAX [Suspect]
     Active Substance: ALENDRONATE SODIUM
     Indication: OSTEOPENIA
     Dosage: 10 MG, UNK
     Route: 048
     Dates: start: 20011107, end: 200806
  15. VITAMINS (UNSPECIFIED) [Concomitant]
     Active Substance: VITAMINS
     Dosage: ONE DAILY
     Dates: start: 2000
  16. PYRIDOXINE [Concomitant]
     Active Substance: PYRIDOXINE
     Dosage: 200 MILLIGRAM, QD
     Dates: start: 2000
  17. PREVACID [Concomitant]
     Active Substance: LANSOPRAZOLE
     Dosage: 15?30 MG QD
     Dates: start: 20001013, end: 200304
  18. SELECTIVE ESTROGEN RECEPTOR MODULATOR (UNSPECIFIED) [Concomitant]
     Dosage: UNK
     Dates: start: 200004, end: 2011

REACTIONS (64)
  - Intramedullary rod insertion [Unknown]
  - Cerebrovascular accident [Unknown]
  - Blood loss anaemia [Unknown]
  - Femur fracture [Unknown]
  - Postoperative heterotopic calcification [Unknown]
  - Spinal osteoarthritis [Unknown]
  - Bursitis [Unknown]
  - Back pain [Unknown]
  - Gastric occult blood positive [Unknown]
  - Bursitis [Unknown]
  - Small intestinal obstruction [Recovered/Resolved]
  - Intestinal obstruction [Unknown]
  - Nausea [Unknown]
  - Nocturia [Unknown]
  - Hyponatraemia [Unknown]
  - Sciatica [Unknown]
  - Photosensitivity reaction [Unknown]
  - Constipation [Recovered/Resolved]
  - Haematocrit decreased [Unknown]
  - Cystocele repair [Unknown]
  - Asthma [Unknown]
  - Malnutrition [Unknown]
  - Pleural effusion [Unknown]
  - Cystocele repair [Unknown]
  - Upper gastrointestinal haemorrhage [Unknown]
  - Dry mouth [Unknown]
  - Decreased appetite [Unknown]
  - Cystocele [Unknown]
  - Rectocele repair [Unknown]
  - Abdominal discomfort [Unknown]
  - Adverse event [Unknown]
  - Device failure [Unknown]
  - Pelvic prolapse [Unknown]
  - Urinary bladder suspension [Unknown]
  - Uterine dilation and curettage [Unknown]
  - Dehydration [Unknown]
  - Renal impairment [Unknown]
  - Haematemesis [Unknown]
  - Lumbosacral radiculopathy [Unknown]
  - Haemorrhoid operation [Unknown]
  - Insomnia [Unknown]
  - Hiatus hernia [Unknown]
  - Postoperative ileus [Recovered/Resolved]
  - Rheumatoid arthritis [Unknown]
  - Hyponatraemia [Unknown]
  - Dyspnoea [Unknown]
  - Hysterectomy [Unknown]
  - Paraesthesia [Not Recovered/Not Resolved]
  - Osteoarthritis [Unknown]
  - Nausea [Unknown]
  - Arthralgia [Recovered/Resolved]
  - Arthralgia [Unknown]
  - Haemoglobin decreased [Unknown]
  - Hepatitis [Unknown]
  - Gait disturbance [Unknown]
  - Leukocytosis [Recovered/Resolved]
  - Vomiting [Unknown]
  - Constipation [Unknown]
  - Rectocele repair [Unknown]
  - Atrophic vulvovaginitis [Unknown]
  - Application site bruise [Unknown]
  - Drug ineffective [Unknown]
  - Musculoskeletal pain [Unknown]
  - Oedema peripheral [Unknown]

NARRATIVE: CASE EVENT DATE: 2008
